FAERS Safety Report 17460785 (Version 1)
Quarter: 2020Q1

REPORT INFORMATION
  Report Type: Spontaneous
  Country: US (occurrence: US)
  Receive Date: 20200225
  Receipt Date: 20200225
  Transmission Date: 20200409
  Serious: Yes (Disabling)
  Sender: FDA-Public Use
  Company Number: None

PATIENT
  Age: 64 Year
  Sex: Female
  Weight: 76.5 kg

DRUGS (5)
  1. ADMELOG [Concomitant]
     Active Substance: INSULIN LISPRO
  2. LEVOTHYROXINE. [Concomitant]
     Active Substance: LEVOTHYROXINE
  3. BASAGLAR [Concomitant]
     Active Substance: INSULIN GLARGINE
  4. ADMELOG [Suspect]
     Active Substance: INSULIN LISPRO
     Indication: DIABETES MELLITUS
  5. VITAMINS [Concomitant]
     Active Substance: VITAMINS

REACTIONS (3)
  - Blood glucose increased [None]
  - Product substitution issue [None]
  - Diabetic complication [None]

NARRATIVE: CASE EVENT DATE: 20190701
